FAERS Safety Report 9069250 (Version 1)
Quarter: 2013Q1

REPORT INFORMATION
  Report Type: Report from Study
  Country: US (occurrence: US)
  Receive Date: 20130131
  Receipt Date: 20130131
  Transmission Date: 20140127
  Serious: No
  Sender: FDA-Public Use
  Company Number: US-ABBOTT-12P-163-0998746-00

PATIENT
  Age: 53 Year
  Sex: Female

DRUGS (1)
  1. HUMIRA [Suspect]
     Indication: PSORIATIC ARTHROPATHY
     Route: 058
     Dates: start: 20120830

REACTIONS (5)
  - Hypertension [Unknown]
  - Cystitis interstitial [Unknown]
  - Sinus headache [Recovered/Resolved]
  - Palpitations [Unknown]
  - Dizziness [Unknown]
